FAERS Safety Report 5919412-X (Version None)
Quarter: 2008Q4

REPORT INFORMATION
  Report Type: 
  Country: None (occurrence: None)
  Receive Date: 20081015
  Receipt Date: 20081007
  Transmission Date: 20090506
  Serious: Yes (Other)
  Sender: FDA-Public Use
  Company Number: PHHY2008AU18050

PATIENT
  Sex: Male

DRUGS (1)
  1. CLOZARIL [Suspect]
     Dosage: 800 MG
     Dates: end: 20080812

REACTIONS (3)
  - HEPATITIS C [None]
  - LYMPHOCYTOSIS [None]
  - NEUTROPENIA [None]
